FAERS Safety Report 8338490-4 (Version None)
Quarter: 2012Q1

REPORT INFORMATION
  Report Type: 
  Country: None (occurrence: None)
  Receive Date: 20120329
  Receipt Date: 20081216
  Transmission Date: 20120608
  Serious: Yes (Other)
  Sender: FDA-Public Use
  Company Number: PHEH2008US10278

PATIENT
  Age: 66 Year
  Sex: Female
  Weight: 95 kg

DRUGS (2)
  1. EXELON [Suspect]
     Indication: AMNESIA
     Dosage: 4.6 MG, QD, TRANSDERMAL : 9.5 MG, QD, TRANSDERMAL
     Route: 062
     Dates: start: 20080915, end: 20080922
  2. EXELON [Suspect]
     Indication: AMNESIA
     Dosage: 4.6 MG, QD, TRANSDERMAL : 9.5 MG, QD, TRANSDERMAL
     Route: 062
     Dates: start: 20080922, end: 20081117

REACTIONS (7)
  - URINARY INCONTINENCE [None]
  - APPLICATION SITE DERMATITIS [None]
  - URINE ODOUR ABNORMAL [None]
  - APPLICATION SITE HYPERSENSITIVITY [None]
  - APPLICATION SITE PRURITUS [None]
  - POLLAKIURIA [None]
  - APPLICATION SITE ERYTHEMA [None]
